FAERS Safety Report 8057693-X (Version None)
Quarter: 2012Q1

REPORT INFORMATION
  Report Type: 
  Country: None (occurrence: None)
  Receive Date: 20120120
  Receipt Date: 20120110
  Transmission Date: 20120608
  Serious: No
  Sender: FDA-Public Use
  Company Number: US-BIOGENIDEC-2012BI001282

PATIENT
  Sex: Female

DRUGS (2)
  1. TYSABRI [Suspect]
     Indication: MULTIPLE SCLEROSIS
     Route: 042
     Dates: start: 20070502, end: 20111129
  2. BETHANECHOL [Concomitant]
     Indication: NEUROGENIC BLADDER

REACTIONS (4)
  - BACK PAIN [None]
  - URINARY TRACT INFECTION [None]
  - HYPERSOMNIA [None]
  - GAIT DISTURBANCE [None]
